FAERS Safety Report 4642756-9 (Version None)
Quarter: 2005Q2

REPORT INFORMATION
  Report Type: 
  Country: None (occurrence: None)
  Receive Date: 20050420
  Receipt Date: 20050404
  Transmission Date: 20051028
  Serious: Yes (Hospitalization)
  Sender: FDA-Public Use
  Company Number: 2005-UK-00560UK

PATIENT
  Age: 74 Year
  Sex: Male

DRUGS (2)
  1. SPIRIVA [Suspect]
     Indication: CHRONIC OBSTRUCTIVE PULMONARY DISEASE
     Dosage: 2 CAPSULES DAILY (18 MCG, DAILY) IH   SINCE HOSPITALISATION; COMMENCED 2 YEARS AGO
     Route: 055
  2. AMITRIPTYLINE HCL [Concomitant]

REACTIONS (3)
  - ANEURYSM [None]
  - DRY MOUTH [None]
  - RENAL IMPAIRMENT [None]
